FAERS Safety Report 6022498-8 (Version None)
Quarter: 2008Q4

REPORT INFORMATION
  Report Type: 
  Country: None (occurrence: None)
  Receive Date: 20081230
  Receipt Date: 20081217
  Transmission Date: 20090506
  Serious: Yes (Other)
  Sender: FDA-Public Use
  Company Number: PHHY2008BR32400

PATIENT
  Age: 3 Year
  Sex: Female
  Weight: 24 kg

DRUGS (1)
  1. CATAFLAM [Suspect]
     Dosage: 3/4 OF THE FLASK(0.5 MG/DROP ; 20 ML)
     Route: 048
     Dates: start: 20081217

REACTIONS (2)
  - ACCIDENTAL DRUG INTAKE BY CHILD [None]
  - GASTRIC LAVAGE [None]
